FAERS Safety Report 4911175-X (Version None)
Quarter: 2006Q1

REPORT INFORMATION
  Report Type: 
  Country: None (occurrence: None)
  Receive Date: 20060214
  Receipt Date: 20031202
  Transmission Date: 20060701
  Serious: Yes (Death, Disabling, Other)
  Sender: FDA-Public Use
  Company Number: US-BRISTOL-MYERS SQUIBB COMPANY-12446928

PATIENT
  Sex: Female

DRUGS (3)
  1. ESTRACE [Suspect]
     Indication: HORMONE REPLACEMENT THERAPY
  2. PREMARIN [Suspect]
     Indication: HORMONE REPLACEMENT THERAPY
  3. ESTRATAB [Suspect]
     Indication: HORMONE REPLACEMENT THERAPY

REACTIONS (5)
  - BLINDNESS [None]
  - BLINDNESS UNILATERAL [None]
  - LUNG NEOPLASM MALIGNANT [None]
  - RETINAL VEIN OCCLUSION [None]
  - VITREOUS HAEMORRHAGE [None]
